FAERS Safety Report 4353028-4 (Version None)
Quarter: 2004Q2

REPORT INFORMATION
  Report Type: 
  Country: None (occurrence: None)
  Receive Date: 20040430
  Receipt Date: 20040324
  Transmission Date: 20050107
  Serious: No
  Sender: FDA-Public Use
  Company Number: 205483

PATIENT
  Age: 70 Year
  Sex: Female

DRUGS (1)
  1. XOLAIR (OMALIZUMAB) PWDR + SOLVENT, INJECTION SITE, 150 MG [Suspect]
     Dates: start: 20040323

REACTIONS (1)
  - URTICARIA [None]
